FAERS Safety Report 7233061-5 (Version None)
Quarter: 2011Q1

REPORT INFORMATION
  Report Type: 
  Country: None (occurrence: None)
  Receive Date: 20110106
  Receipt Date: 20101222
  Transmission Date: 20110831
  Serious: Yes (Death, Hospitalization)
  Sender: FDA-Public Use
  Company Number: 007538

PATIENT
  Age: 85 Year
  Sex: Female

DRUGS (6)
  1. PLETAL [Suspect]
     Indication: ARTERIOSCLEROSIS OBLITERANS
     Dosage: 100 MG, BID ORAL
     Route: 048
     Dates: start: 20090418, end: 20090713
  2. DIOVAN [Concomitant]
  3. AMLODIPINE [Concomitant]
  4. ALDACTONE [Concomitant]
  5. FLUITRAN (TRICHLORMETHIAZIDE) [Concomitant]
  6. DOXAZOSIN MESYLATE [Concomitant]

REACTIONS (1)
  - CARDIAC FAILURE [None]
